FAERS Safety Report 15210070 (Version 2)
Quarter: 2018Q3

REPORT INFORMATION
  Report Type: Spontaneous
  Country: HK (occurrence: HK)
  Receive Date: 20180727
  Receipt Date: 20180801
  Transmission Date: 20181010
  Serious: Yes (Other)
  Sender: FDA-Public Use
  Company Number: HK-PFIZER INC-2018298676

PATIENT
  Age: 58 Year
  Sex: Female

DRUGS (5)
  1. GABAPENTIN. [Suspect]
     Active Substance: GABAPENTIN
     Indication: ANALGESIC THERAPY
     Dosage: UNK
  2. TRIAMCINOLONE [Suspect]
     Active Substance: TRIAMCINOLONE
     Indication: PAIN
     Dosage: UNK (0.5 ML OF A PLANNED TOTAL INJECTATE OF 5 ML (0.375% ROPIVACAINE + 1 ML OF 40 MG/ML TRIAMCINOLO)
     Route: 008
  3. OMNIPAQUE [Concomitant]
     Active Substance: IOHEXOL
     Dosage: 1 ML, UNK
  4. ROPIVACAINE [Concomitant]
     Active Substance: ROPIVACAINE
     Indication: PAIN
     Dosage: UNK (0.5 ML OF A PLANNED TOTAL INJECTATE OF 5 ML (0.375% ROPIVACAINE + 1 ML OF 40 MG/ML TRIAMCINOLO)
     Route: 008
  5. ROPIVACAINE [Concomitant]
     Active Substance: ROPIVACAINE
     Dosage: 1.5 ML, UNK
     Route: 008

REACTIONS (1)
  - Myoclonus [Recovered/Resolved]
